FAERS Safety Report 9250245 (Version 2)
Quarter: 2013Q3

REPORT INFORMATION
  Report Type: Spontaneous
  Country: US (occurrence: US)
  Receive Date: 20130424
  Receipt Date: 20130705
  Transmission Date: 20140515
  Serious: Yes (Hospitalization)
  Sender: FDA-Public Use
  Company Number: US-ASTRAZENECA-2013SE27283

PATIENT
  Age: 72 Year
  Sex: Female

DRUGS (24)
  1. NEXIUM [Suspect]
     Indication: GASTROOESOPHAGEAL REFLUX DISEASE
     Dosage: ONCE A DAY
     Route: 048
     Dates: start: 20041215, end: 20110328
  2. NEXIUM [Suspect]
     Indication: GASTROOESOPHAGEAL REFLUX DISEASE
     Route: 048
     Dates: start: 20041215
  3. PROTONIX [Concomitant]
     Dates: start: 20110428, end: 20130620
  4. ZANTAC [Concomitant]
     Dates: start: 19990715, end: 20020403
  5. TAGAMET [Concomitant]
     Dates: start: 19980317, end: 19991013
  6. POTASSIUM [Concomitant]
     Indication: BONE DISORDER
     Dates: start: 19990507, end: 19991011
  7. CELECOXIB [Concomitant]
     Dates: start: 20030306, end: 20031112
  8. ASPIRIN [Concomitant]
     Indication: CARDIAC DISORDER
  9. SPIRONOLACTONE [Concomitant]
     Dates: start: 20040903
  10. ENALAPRIL [Concomitant]
     Dates: start: 20040903
  11. AMLODIPINE [Concomitant]
     Dates: start: 20040802
  12. CARVEDILOL [Concomitant]
     Indication: CARDIAC DISORDER
     Dates: start: 20040802
  13. ACETAMINOPHEN W/CODEINE [Concomitant]
     Dates: start: 20040726
  14. FUROSEMIDE [Concomitant]
     Dosage: 1 AND HALF TABLET PO BID
     Dates: start: 20040705
  15. LORAZEPAM [Concomitant]
     Dates: start: 20040426
  16. NISOLDIPINE [Concomitant]
     Dates: start: 20050815
  17. PREDNISONE [Concomitant]
     Dates: start: 20090429
  18. PREDNISONE [Concomitant]
  19. TRAZADONE HCL [Concomitant]
     Dates: start: 20070618
  20. FELODIPINE [Concomitant]
     Dates: start: 20080225
  21. BISACODYL [Concomitant]
     Dosage: TAKE ONE EACH NIGHT
     Dates: start: 20071105
  22. ROSUVASTATIN CALCIUM [Concomitant]
  23. ZOCOR/SIMVASTATIN [Concomitant]
     Dates: start: 20060619
  24. REGLAN [Concomitant]
     Indication: NAUSEA
     Dates: start: 20060911

REACTIONS (19)
  - Chronic obstructive pulmonary disease [Unknown]
  - Renal injury [Unknown]
  - Blood glucose increased [Unknown]
  - Renal failure chronic [Unknown]
  - Osteoporosis [Unknown]
  - Bone disorder [Unknown]
  - Multiple fractures [Unknown]
  - Bone loss [Unknown]
  - Body height decreased [Unknown]
  - Arthritis [Unknown]
  - Angina pectoris [Unknown]
  - Cardiovascular disorder [Unknown]
  - Aortic disorder [Unknown]
  - Depression [Unknown]
  - Diabetes mellitus [Unknown]
  - Peripheral arterial occlusive disease [Unknown]
  - Rheumatoid arthritis [Unknown]
  - Liver injury [Unknown]
  - Pain [Unknown]
